FAERS Safety Report 6064045-0 (Version None)
Quarter: 2009Q1

REPORT INFORMATION
  Report Type: 
  Country: None (occurrence: None)
  Receive Date: 20090203
  Receipt Date: 20090203
  Transmission Date: 20090719
  Serious: Yes (Other)
  Sender: FDA-Public Use
  Company Number: None

PATIENT
  Age: 71 Year
  Sex: Female

DRUGS (1)
  1. COMBIGAN [Suspect]
     Indication: INTRAOCULAR PRESSURE TEST
     Dosage: 1 DROP IN BOTH EYES, TWICE DAILY

REACTIONS (3)
  - ERYTHEMA OF EYELID [None]
  - EYELID DISORDER [None]
  - EYELID MARGIN CRUSTING [None]
